FAERS Safety Report 9225489 (Version 1)
Quarter: 2013Q2

REPORT INFORMATION
  Report Type: Report from Study
  Country: CA (occurrence: CA)
  Receive Date: 20130411
  Receipt Date: 20130411
  Transmission Date: 20140414
  Serious: Yes (Hospitalization)
  Sender: FDA-Public Use
  Company Number: CA-JNJFOC-20130401208

PATIENT
  Sex: Male
  Weight: 52 kg

DRUGS (2)
  1. REMICADE [Suspect]
     Indication: CROHN^S DISEASE
     Route: 042
     Dates: start: 20080730
  2. METHOTREXATE [Concomitant]
     Route: 065

REACTIONS (2)
  - Surgery [Unknown]
  - Drug ineffective [Unknown]
